FAERS Safety Report 12364679 (Version 3)
Quarter: 2016Q2

REPORT INFORMATION
  Report Type: Report from Study
  Country: US (occurrence: US)
  Receive Date: 20160512
  Receipt Date: 20160609
  Transmission Date: 20160815
  Serious: Yes (Hospitalization)
  Sender: FDA-Public Use
  Company Number: US-BIOGEN-2016BI00235478

PATIENT
  Age: 56 Year
  Sex: Male

DRUGS (1)
  1. AVONEX [Suspect]
     Active Substance: INTERFERON BETA-1A
     Indication: MULTIPLE SCLEROSIS
     Route: 030
     Dates: start: 20010927

REACTIONS (3)
  - Myocardial infarction [Recovered/Resolved]
  - Amnesia [Recovered/Resolved]
  - Confusional arousal [Recovered/Resolved]

NARRATIVE: CASE EVENT DATE: 20120223
